FAERS Safety Report 16932568 (Version 1)
Quarter: 2019Q4

REPORT INFORMATION
  Report Type: Report from Study
  Country: None (occurrence: US)
  Receive Date: 20191017
  Receipt Date: 20191017
  Transmission Date: 20200122
  Serious: Yes (Other)
  Sender: FDA-Public Use
  Company Number: US-ABBVIE-19K-163-2966517-00

PATIENT
  Sex: Female

DRUGS (2)
  1. HUMIRA [Suspect]
     Active Substance: ADALIMUMAB
     Indication: PSORIASIS
  2. HUMIRA [Suspect]
     Active Substance: ADALIMUMAB
     Indication: PSORIATIC ARTHROPATHY
     Route: 058
     Dates: end: 2019

REACTIONS (8)
  - Joint dislocation [Not Recovered/Not Resolved]
  - Osteoarthritis [Unknown]
  - Psoriasis [Not Recovered/Not Resolved]
  - Gait disturbance [Unknown]
  - Neuropathy peripheral [Not Recovered/Not Resolved]
  - Apathy [Unknown]
  - Osteoarthritis [Not Recovered/Not Resolved]
  - Arthritis [Not Recovered/Not Resolved]
